FAERS Safety Report 4448891-2 (Version None)
Quarter: 2004Q3

REPORT INFORMATION
  Report Type: 
  Country: None (occurrence: None)
  Receive Date: 20040909
  Receipt Date: 20040831
  Transmission Date: 20050211
  Serious: Yes (Hospitalization, Other)
  Sender: FDA-Public Use
  Company Number: TPA2004A00847

PATIENT
  Age: 39 Year
  Sex: Male

DRUGS (4)
  1. ACTOS [Suspect]
     Indication: DIABETES MELLITUS
     Dosage: 15 MG, 1 IN 1 D, PER ORAL
     Route: 048
     Dates: start: 20040701, end: 20040710
  2. BENICAR [Concomitant]
  3. ALLOPURINOL [Concomitant]
  4. ARTHROTEC XR (ARTHROTEC) [Concomitant]

REACTIONS (20)
  - ANGIOPATHY [None]
  - BLOOD ALBUMIN INCREASED [None]
  - BLOOD BICARBONATE DECREASED [None]
  - BLOOD GLUCOSE INCREASED [None]
  - BLOOD MAGNESIUM DECREASED [None]
  - BLOOD POTASSIUM INCREASED [None]
  - BLOOD SODIUM DECREASED [None]
  - COLD SWEAT [None]
  - CONVULSION [None]
  - DIZZINESS [None]
  - GLUCOSE URINE PRESENT [None]
  - HAEMATOCRIT DECREASED [None]
  - HAEMOGLOBIN DECREASED [None]
  - HEPATIC STEATOSIS [None]
  - ISCHAEMIA [None]
  - NAUSEA [None]
  - PLATELET COUNT INCREASED [None]
  - PROTEIN TOTAL INCREASED [None]
  - PROTHROMBIN LEVEL INCREASED [None]
  - RENAL FAILURE ACUTE [None]
